FAERS Safety Report 6750008-6 (Version None)
Quarter: 2010Q2

REPORT INFORMATION
  Report Type: 
  Country: None (occurrence: None)
  Receive Date: 20100601
  Receipt Date: 20100521
  Transmission Date: 20101027
  Serious: Yes (Other)
  Sender: FDA-Public Use
  Company Number: GXKR2010GB05789

PATIENT
  Age: 20 Month
  Sex: Female

DRUGS (1)
  1. PHENOXYMETHYLPENICILLIN [Suspect]
     Indication: LOWER RESPIRATORY TRACT INFECTION
     Dosage: 1 DF, QID
     Route: 048
     Dates: start: 20080420, end: 20080423

REACTIONS (2)
  - ABNORMAL BEHAVIOUR [None]
  - SCREAMING [None]
